FAERS Safety Report 7396284-0 (Version None)
Quarter: 2011Q2

REPORT INFORMATION
  Report Type: 
  Country: None (occurrence: None)
  Receive Date: 20110406
  Receipt Date: 20110310
  Transmission Date: 20111010
  Serious: No
  Sender: FDA-Public Use
  Company Number: US-B.I. PHARMACEUTICALS,INC./RIDGEFIELD-2011-BP-07667BP

PATIENT
  Age: 80 Year
  Sex: Male

DRUGS (1)
  1. PRADAXA [Suspect]
     Dosage: 300 MG
     Route: 048
     Dates: start: 20110309, end: 20110309

REACTIONS (6)
  - DIARRHOEA [None]
  - DISORIENTATION [None]
  - SPEECH DISORDER [None]
  - ABDOMINAL DISCOMFORT [None]
  - HYPERHIDROSIS [None]
  - COLD SWEAT [None]
